FAERS Safety Report 9699813 (Version 3)
Quarter: 2014Q1

REPORT INFORMATION
  Report Type: Spontaneous
  Country: US (occurrence: US)
  Receive Date: 20131120
  Receipt Date: 20140113
  Transmission Date: 20141002
  Serious: No
  Sender: FDA-Public Use
  Company Number: US-009507513-1311USA004043

PATIENT
  Age: 47 Year
  Sex: Male

DRUGS (2)
  1. PEGINTRON [Suspect]
     Indication: HEPATITIS C
     Dosage: 150 MICROGRAM, QW
     Dates: start: 20130612
  2. REBETOL [Suspect]
     Route: 048

REACTIONS (3)
  - Fatigue [Recovering/Resolving]
  - Drug dose omission [Unknown]
  - Product quality issue [Unknown]
